FAERS Safety Report 24006029 (Version 6)
Quarter: 2025Q4

REPORT INFORMATION
  Report Type: Spontaneous
  Country: US (occurrence: US)
  Receive Date: 20240624
  Receipt Date: 20251113
  Transmission Date: 20260117
  Serious: No
  Sender: IPSEN BIOPHARMACEUTICALS, INC.
  Company Number: US-IPSEN Group, Research and Development-2024-12432

PATIENT
  Age: 14 Year
  Sex: Male

DRUGS (5)
  1. SOHONOS [Suspect]
     Active Substance: PALOVAROTENE
     Indication: Fibrodysplasia ossificans progressiva
     Dosage: 5 MG DAILY
     Route: 048
     Dates: start: 20231125
  2. SOHONOS [Suspect]
     Active Substance: PALOVAROTENE
     Dosage: 10 MG DAILY
     Route: 048
  3. SOHONOS [Suspect]
     Active Substance: PALOVAROTENE
     Dosage: FOR WEEKS 1-4 OF FLARE DOSING
     Route: 048
  4. SOHONOS [Suspect]
     Active Substance: PALOVAROTENE
     Dosage: 10 MG DAILY
     Route: 048
     Dates: start: 2025, end: 2025
  5. SOHONOS [Suspect]
     Active Substance: PALOVAROTENE
     Dosage: 5 MG DAILY
     Route: 048
     Dates: start: 2025

REACTIONS (4)
  - Condition aggravated [Not Recovered/Not Resolved]
  - Condition aggravated [Unknown]
  - Condition aggravated [Unknown]
  - Fall [Unknown]

NARRATIVE: CASE EVENT DATE: 20240601
